FAERS Safety Report 5574307-9 (Version None)
Quarter: 2007Q4

REPORT INFORMATION
  Report Type: 
  Country: None (occurrence: None)
  Receive Date: 20071226
  Receipt Date: 20071226
  Transmission Date: 20080405
  Serious: Yes (Other)
  Sender: FDA-Public Use
  Company Number: None

PATIENT
  Sex: Female
  Weight: 81.6475 kg

DRUGS (1)
  1. ATIVAN [Suspect]
     Dosage: 2MG 3 TIMES DAILY
     Dates: start: 20050101

REACTIONS (5)
  - CONSTIPATION [None]
  - ELECTROENCEPHALOGRAM ABNORMAL [None]
  - MUSCLE RIGIDITY [None]
  - OEDEMA [None]
  - PHARMACEUTICAL PRODUCT COMPLAINT [None]
